FAERS Safety Report 8065343 (Version 3)
Quarter: 2015Q1

REPORT INFORMATION
  Report Type: Spontaneous
  Country: US (occurrence: US)
  Receive Date: 20110802
  Receipt Date: 20150202
  Transmission Date: 20150721
  Serious: Yes (Hospitalization)
  Sender: FDA-Public Use
  Company Number: US-BAYER-2011-066971

PATIENT
  Age: 47 Year
  Sex: Female
  Weight: 74.83 kg

DRUGS (9)
  1. EFFEXOR [Concomitant]
     Active Substance: VENLAFAXINE HYDROCHLORIDE
  2. ADVAIR DISKUS [Concomitant]
     Active Substance: FLUTICASONE PROPIONATE\SALMETEROL XINAFOATE
  3. FISH OIL [Concomitant]
     Active Substance: FISH OIL
     Dosage: 100 MG, QD
     Route: 048
  4. BEELITH [Concomitant]
  5. ALBUTEROL. [Concomitant]
     Active Substance: ALBUTEROL
  6. YAZ [Suspect]
     Active Substance: DROSPIRENONE\ETHINYL ESTRADIOL
     Dosage: UNK
     Dates: start: 20090821, end: 20090926
  7. NEXIUM [Concomitant]
     Active Substance: ESOMEPRAZOLE MAGNESIUM
     Dosage: 40 MG, QD
     Route: 048
  8. EFFEXOR XR [Concomitant]
     Active Substance: VENLAFAXINE HYDROCHLORIDE
     Dosage: 37.5 MG QD
     Route: 048
  9. MAGNESIUM [Concomitant]
     Active Substance: MAGNESIUM
     Dosage: 1 AS NEEDED
     Route: 048

REACTIONS (19)
  - Anxiety [Unknown]
  - Musculoskeletal stiffness [Recovering/Resolving]
  - Injury [Recovering/Resolving]
  - Mobility decreased [Recovering/Resolving]
  - Muscle spasticity [Recovering/Resolving]
  - Muscular weakness [Recovering/Resolving]
  - Emotional distress [Unknown]
  - Pain [Recovering/Resolving]
  - Anhedonia [Recovering/Resolving]
  - Seizure [None]
  - Balance disorder [Recovering/Resolving]
  - Fear [Unknown]
  - Concussion [None]
  - Muscle tightness [Recovering/Resolving]
  - Ischaemic stroke [Recovering/Resolving]
  - Depression [Unknown]
  - Peroneal nerve palsy [Recovering/Resolving]
  - Visual field defect [Recovering/Resolving]
  - Cerebral thrombosis [Recovering/Resolving]

NARRATIVE: CASE EVENT DATE: 20090926
